FAERS Safety Report 13598124 (Version 1)
Quarter: 2017Q2

REPORT INFORMATION
  Report Type: Spontaneous
  Country: US (occurrence: US)
  Receive Date: 20170531
  Receipt Date: 20170531
  Transmission Date: 20170830
  Serious: Yes (Other)
  Sender: FDA-Public Use
  Company Number: US-PFIZER INC-2017233970

PATIENT
  Sex: Female

DRUGS (1)
  1. EPINEPHRINE/LIDOCAINE HYDROCHLORIDE [Suspect]
     Active Substance: EPINEPHRINE\LIDOCAINE HYDROCHLORIDE
     Indication: BIOPSY BREAST
     Dosage: [LIDOCAINE HCL 2%]/[ EPINEPHRINE 1:100,000]LESS THAN 10CC INJECTED WITH 25G NEEDLE INTO SOFT TISSUE

REACTIONS (4)
  - Erythema [Unknown]
  - Pyrexia [Unknown]
  - Breast swelling [Unknown]
  - Mastitis [Unknown]
